FAERS Safety Report 4567556-X (Version None)
Quarter: 2005Q1

REPORT INFORMATION
  Report Type: 
  Country: None (occurrence: None)
  Receive Date: 20050127
  Receipt Date: 20050120
  Transmission Date: 20050727
  Serious: Yes (Hospitalization)
  Sender: FDA-Public Use
  Company Number: 2005-01-1289

PATIENT
  Age: 28 Year
  Sex: Female
  Weight: 66 kg

DRUGS (8)
  1. TEMODAL [Suspect]
     Indication: CENTRAL NERVOUS SYSTEM NEOPLASM
     Dosage: 350 MG ORAL; SEE IMAGE
     Route: 048
     Dates: start: 20040901, end: 20040901
  2. TEMODAL [Suspect]
     Indication: CENTRAL NERVOUS SYSTEM NEOPLASM
     Dosage: 350 MG ORAL; SEE IMAGE
     Route: 048
     Dates: start: 20041001, end: 20041001
  3. TEMODAL [Suspect]
     Indication: CENTRAL NERVOUS SYSTEM NEOPLASM
     Dosage: 350 MG ORAL; SEE IMAGE
     Route: 048
     Dates: start: 20040401
  4. ONDANSETRON [Suspect]
  5. ETHINYL ESTRADIOL/GESTODENE ORAL [Concomitant]
  6. FLUOXETINE [Concomitant]
  7. ALPRAZOLAM ORAL [Concomitant]
  8. OMEPRAZOLE [Concomitant]

REACTIONS (2)
  - PRURITUS [None]
  - RASH MACULO-PAPULAR [None]
